FAERS Safety Report 14634643 (Version 1)
Quarter: 2018Q1

REPORT INFORMATION
  Report Type: Spontaneous
  Country: US (occurrence: US)
  Receive Date: 20180314
  Receipt Date: 20180314
  Transmission Date: 20180509
  Serious: No
  Sender: FDA-Public Use
  Company Number: US-PFIZER INC-2017550309

PATIENT
  Age: 61 Year
  Sex: Male

DRUGS (2)
  1. IBRANCE [Suspect]
     Active Substance: PALBOCICLIB
     Indication: SOFT TISSUE SARCOMA
     Dosage: 125 MG, CYCLIC, (DAILY FOR 21 DAYS ON AND 7 DAYS OFF. REPEAT 28-DAY CYCLE)
     Route: 048
     Dates: start: 201711
  2. IBRANCE [Suspect]
     Active Substance: PALBOCICLIB
     Indication: MALIGNANT CONNECTIVE TISSUE NEOPLASM

REACTIONS (3)
  - Product use issue [Unknown]
  - Blood count abnormal [Unknown]
  - Product use in unapproved indication [Unknown]

NARRATIVE: CASE EVENT DATE: 201711
